FAERS Safety Report 7717047-X (Version None)
Quarter: 2011Q3

REPORT INFORMATION
  Report Type: 
  Country: None (occurrence: None)
  Receive Date: 20110830
  Receipt Date: 20110822
  Transmission Date: 20111222
  Serious: Yes (Other)
  Sender: FDA-Public Use
  Company Number: DE-AMGEN-DEUSP2011030584

PATIENT
  Age: 52 Year
  Sex: Female
  Weight: 54 kg

DRUGS (6)
  1. SINGULAIR [Concomitant]
     Dosage: UNK
  2. ACEMETACIN [Concomitant]
     Dosage: UNK
  3. VOLTAREN [Concomitant]
     Indication: ARTHRALGIA
     Dosage: UNK
  4. SALBUHEXAL                         /00139501/ [Concomitant]
     Indication: DYSPNOEA
  5. ENBREL [Suspect]
     Indication: PRODUCT USED FOR UNKNOWN INDICATION
     Dosage: 50 MG, WEEKLY
     Dates: start: 20110520
  6. OMEPRAZOLE [Concomitant]
     Indication: ABDOMINAL DISCOMFORT
     Dosage: UNK

REACTIONS (3)
  - IRIDOCYCLITIS [None]
  - COUGH [None]
  - ERYTHEMA [None]
